FAERS Safety Report 14211773 (Version 1)
Quarter: 2017Q4

REPORT INFORMATION
  Report Type: Spontaneous
  Country: CA (occurrence: CA)
  Receive Date: 20171121
  Receipt Date: 20171121
  Transmission Date: 20180321
  Serious: Yes (Death, Hospitalization)
  Sender: FDA-Public Use
  Company Number: CA-ACTELION-A-US2017-162909

PATIENT
  Age: 79 Year
  Sex: Male

DRUGS (9)
  1. SPIRIVA [Concomitant]
     Active Substance: TIOTROPIUM BROMIDE MONOHYDRATE
  2. EZETROL [Concomitant]
     Active Substance: EZETIMIBE
  3. SALVENT [Concomitant]
     Active Substance: ALBUTEROL
  4. TOLOXIN [Concomitant]
     Active Substance: DIGOXIN
  5. CEPHALEX [Concomitant]
  6. OPSUMIT [Suspect]
     Active Substance: MACITENTAN
     Indication: PULMONARY ARTERIAL HYPERTENSION
     Dosage: 10 MG, QD
     Route: 048
     Dates: start: 20160325
  7. METOPROLOL. [Concomitant]
     Active Substance: METOPROLOL
  8. ACTONEL [Concomitant]
     Active Substance: RISEDRONATE SODIUM
  9. CLOPIDOGREL [Concomitant]
     Active Substance: CLOPIDOGREL BISULFATE

REACTIONS (1)
  - Death [Fatal]

NARRATIVE: CASE EVENT DATE: 2017
